FAERS Safety Report 5376568-8 (Version None)
Quarter: 2007Q2

REPORT INFORMATION
  Report Type: 
  Country: None (occurrence: None)
  Receive Date: 20070629
  Receipt Date: 20070521
  Transmission Date: 20071010
  Serious: Yes (Disabling)
  Sender: FDA-Public Use
  Company Number: 2007US001464

PATIENT
  Age: 50 Year
  Sex: Male

DRUGS (1)
  1. AMBISOME [Suspect]
     Indication: ACUTE MYELOID LEUKAEMIA
     Dosage: 100 MG, IV DRIP
     Route: 041

REACTIONS (2)
  - BONE MARROW TRANSPLANT [None]
  - DEAFNESS [None]
